FAERS Safety Report 6843800-0 (Version None)
Quarter: 2010Q3

REPORT INFORMATION
  Report Type: 
  Country: None (occurrence: None)
  Receive Date: 20100715
  Receipt Date: 20100701
  Transmission Date: 20110219
  Serious: Yes (Hospitalization, Other)
  Sender: FDA-Public Use
  Company Number: PHHY2010BR43243

PATIENT
  Age: 39 Year
  Sex: Female
  Weight: 148 kg

DRUGS (5)
  1. DIOVAN AMLO [Suspect]
     Indication: HYPERTENSION
     Dosage: 1 DF, TID
     Route: 048
  2. FORASEQ [Concomitant]
     Indication: BRONCHITIS
     Dosage: 1 DF, TID
  3. ATROVENT [Concomitant]
     Indication: BRONCHITIS
     Dosage: 1 DF, TID
  4. ALDACTONE [Concomitant]
     Indication: HYPERTENSION
     Dosage: 100 MG, BID
     Route: 048
  5. RIVOTRIL [Concomitant]
     Indication: SLEEP DISORDER
     Dosage: 2 MG, 1 TABLET DAILY
     Route: 048

REACTIONS (2)
  - BLOOD PRESSURE INADEQUATELY CONTROLLED [None]
  - HYPERTENSION [None]
